FAERS Safety Report 7752745-3 (Version None)
Quarter: 2011Q3

REPORT INFORMATION
  Report Type: 
  Country: None (occurrence: None)
  Receive Date: 20110915
  Receipt Date: 20110906
  Transmission Date: 20111222
  Serious: Yes (Other)
  Sender: FDA-Public Use
  Company Number: US-ROCHE-801698

PATIENT
  Age: 42 Year
  Sex: Female
  Weight: 89.8 kg

DRUGS (9)
  1. TRETINOIN [Suspect]
     Route: 065
     Dates: start: 20110514, end: 20110526
  2. CYTARABINE [Suspect]
     Indication: ACUTE MYELOID LEUKAEMIA
     Route: 065
     Dates: start: 20110506, end: 20110512
  3. LEVOFLOXACIN [Suspect]
     Indication: ANTIBIOTIC THERAPY
     Route: 048
     Dates: start: 20110504, end: 20110513
  4. ETOPOSIDE [Suspect]
     Indication: ACUTE MYELOID LEUKAEMIA
     Route: 065
     Dates: start: 20110506, end: 20110508
  5. TRETINOIN [Suspect]
     Indication: ACUTE MYELOID LEUKAEMIA
     Route: 065
     Dates: start: 20110511, end: 20110513
  6. POSACONAZOLE [Suspect]
     Route: 048
  7. IDARUBICIN HCL [Suspect]
     Indication: ACUTE MYELOID LEUKAEMIA
     Route: 065
     Dates: start: 20110506, end: 20110510
  8. LEVOFLOXACIN [Suspect]
     Route: 048
  9. POSACONAZOLE [Suspect]
     Indication: ANTIBIOTIC THERAPY
     Route: 048
     Dates: start: 20110504, end: 20110524

REACTIONS (1)
  - HYPERBILIRUBINAEMIA [None]
